FAERS Safety Report 16823443 (Version 1)
Quarter: 2019Q3

REPORT INFORMATION
  Report Type: Report from Study
  Country: US (occurrence: US)
  Receive Date: 20190918
  Receipt Date: 20190918
  Transmission Date: 20191005
  Serious: Yes (Life-Threatening, Hospitalization, Other)
  Sender: FDA-Public Use
  Company Number: US-RECRO GAINESVILLE LLC-REPH-2019-000190

PATIENT
  Age: 21 Year
  Sex: Female

DRUGS (2)
  1. ATENOLOL. [Suspect]
     Active Substance: ATENOLOL
     Dosage: UNK
     Route: 048
  2. VERAPAMIL HYDROCHLORIDE SUSTAINED RELEASE [Suspect]
     Active Substance: VERAPAMIL HYDROCHLORIDE
     Dosage: UNK
     Route: 048

REACTIONS (11)
  - Hypotension [Recovered/Resolved]
  - Hypothermia [Unknown]
  - Hypocapnia [Unknown]
  - Bradycardia [Recovered/Resolved]
  - Restlessness [Recovered/Resolved]
  - Lethargy [Recovered/Resolved]
  - Nodal rhythm [Recovered/Resolved]
  - Hypoxia [Unknown]
  - Suicide attempt [Recovered/Resolved]
  - Drug interaction [Recovered/Resolved]
  - Cyanosis [Recovered/Resolved]
